FAERS Safety Report 10111485 (Version 1)
Quarter: 2014Q2

REPORT INFORMATION
  Report Type: Spontaneous
  Country: US (occurrence: None)
  Receive Date: 20140421
  Receipt Date: 20140421
  Transmission Date: 20141212
  Serious: Yes (Other)
  Sender: FDA-Public Use
  Company Number: AEGR000357

PATIENT
  Age: 61 Year
  Sex: Female

DRUGS (10)
  1. JUXTAPID (LOMITAPIDE) CAPSULE, 10MG [Suspect]
     Indication: PRODUCT USED FOR UNKNOWN INDICATION
     Route: 048
  2. LOPID (GEMFIBROZIL) [Suspect]
     Indication: PRODUCT USED FOR UNKNOWN INDICATION
     Route: 048
  3. NIASPAN [Suspect]
     Indication: PRODUCT USED FOR UNKNOWN INDICATION
     Route: 048
  4. QUESTRAN (COLESTYRAMINE) [Concomitant]
  5. ZETIA (EZETIMIBE) [Concomitant]
  6. TOPROL (METOPROLOL SUCCINATE) [Concomitant]
  7. ASA (ACETYLSALICYLIC ACID) [Concomitant]
  8. EFFEXOR (VENLAFAXINE HYDRCHLORIDE) [Concomitant]
  9. WELLBUTRIN (BUPROPION HYROCHLORIDE) [Concomitant]
  10. FISH OIL (FISH OIL) [Concomitant]

REACTIONS (3)
  - Aspartate aminotransferase increased [None]
  - Alanine aminotransferase increased [None]
  - Product used for unknown indication [None]
